FAERS Safety Report 9475732 (Version 2)
Quarter: 2013Q4

REPORT INFORMATION
  Report Type: Spontaneous
  Country: BR (occurrence: BR)
  Receive Date: 20130826
  Receipt Date: 20131115
  Transmission Date: 20140711
  Serious: Yes (Other)
  Sender: FDA-Public Use
  Company Number: BR-JNJFOC-20130812945

PATIENT
  Age: 61 Year
  Sex: Female
  Weight: 58.05 kg

DRUGS (3)
  1. XARELTO [Suspect]
     Indication: PRODUCT USED FOR UNKNOWN INDICATION
     Route: 048
  2. XARELTO [Suspect]
     Indication: PRODUCT USED FOR UNKNOWN INDICATION
     Route: 048
     Dates: start: 201305
  3. CLIANE [Suspect]
     Indication: MENOPAUSE
     Route: 048
     Dates: start: 1999, end: 201305

REACTIONS (2)
  - Deep vein thrombosis [Recovering/Resolving]
  - Incorrect dose administered [Unknown]
